FAERS Safety Report 8360519-8 (Version None)
Quarter: 2012Q2

REPORT INFORMATION
  Report Type: 
  Country: None (occurrence: None)
  Receive Date: 20120515
  Receipt Date: 20120501
  Transmission Date: 20120825
  Serious: Yes (Life-Threatening, Disabling, Other)
  Sender: FDA-Public Use
  Company Number: GB-AMGEN-US288355

PATIENT
  Age: 61 Year
  Sex: Male
  Weight: 79 kg

DRUGS (8)
  1. FOLIC ACID [Concomitant]
     Indication: RHEUMATOID ARTHRITIS
     Dosage: 5 MG, 1X/DAY
     Route: 048
     Dates: start: 20061013, end: 20080501
  2. ENBREL [Suspect]
     Indication: RHEUMATOID ARTHRITIS
     Dosage: 50 MG, QWK
     Route: 058
     Dates: start: 20070425, end: 20080401
  3. METHOTREXATE [Concomitant]
     Indication: RHEUMATOID ARTHRITIS
     Dosage: 15 MG, WEEKLY
     Route: 048
     Dates: start: 20061013, end: 20080501
  4. METHOTREXATE [Concomitant]
     Dosage: 15 MG, WEEKLY
     Route: 048
  5. PRILOSEC [Concomitant]
     Dosage: UNK
     Route: 048
     Dates: start: 20070320
  6. SULFASALAZINE [Concomitant]
     Indication: RHEUMATOID ARTHRITIS
     Dosage: 1 G, 3X/DAY
     Route: 048
     Dates: start: 20010801, end: 20071001
  7. SULFASALAZINE [Concomitant]
     Dosage: 1 G, 3X/DAY
     Route: 048
     Dates: start: 20010810
  8. DICLOFENAC SODIUM [Concomitant]
     Indication: RHEUMATOID ARTHRITIS
     Dosage: 50 MG, 3X/DAY
     Route: 048
     Dates: start: 20051001

REACTIONS (2)
  - LUNG NEOPLASM MALIGNANT [None]
  - TONSIL CANCER [None]
